FAERS Safety Report 8551562-4 (Version None)
Quarter: 2012Q3

REPORT INFORMATION
  Report Type: 
  Country: None (occurrence: None)
  Receive Date: 20120730
  Receipt Date: 20120726
  Transmission Date: 20120928
  Serious: Yes (Other)
  Sender: FDA-Public Use
  Company Number: US-NAPPMUNDI-USA-2012-0089325

PATIENT
  Age: 53 Year
  Sex: Female
  Weight: 62.585 kg

DRUGS (1)
  1. OXYCONTIN [Suspect]
     Indication: PRODUCT USED FOR UNKNOWN INDICATION

REACTIONS (8)
  - MYOCARDIAL INFARCTION [None]
  - CHEST PAIN [None]
  - NAUSEA [None]
  - IMPAIRED GASTRIC EMPTYING [None]
  - PAIN IN EXTREMITY [None]
  - BLOOD GLUCOSE DECREASED [None]
  - COLD SWEAT [None]
  - HEADACHE [None]
